FAERS Safety Report 8049357-3 (Version None)
Quarter: 2011Q4

REPORT INFORMATION
  Report Type: 
  Country: None (occurrence: None)
  Receive Date: 20111209
  Receipt Date: 20111011
  Transmission Date: 20120403
  Serious: No
  Sender: FDA-Public Use
  Company Number: TH-2011-00439

PATIENT
  Age: 50 Year
  Sex: Male

DRUGS (4)
  1. ZOLOFT [Concomitant]
  2. VICTOZA [Concomitant]
  3. EGRIFTA [Suspect]
     Indication: LIPODYSTROPHY ACQUIRED
     Dosage: 1 IN 1 D
     Dates: start: 20111008
  4. METFORMIN HCL [Concomitant]

REACTIONS (3)
  - FEELING HOT [None]
  - MOOD SWINGS [None]
  - EUPHORIC MOOD [None]
